FAERS Safety Report 8895505 (Version 2)
Quarter: 2013Q2

REPORT INFORMATION
  Report Type: Spontaneous
  Country: US (occurrence: US)
  Receive Date: 20121107
  Receipt Date: 20130624
  Transmission Date: 20140414
  Serious: Yes (Other)
  Sender: FDA-Public Use
  Company Number: CHPA2012US022685

PATIENT
  Age: 64 Year
  Sex: Female

DRUGS (3)
  1. TAVIST ALLERGY (FORMERLY TAVIST-1) TABS [Suspect]
     Indication: ANAPHYLACTIC REACTION
     Dosage: 1/2 TO 1 DF, PRN
     Route: 048
     Dates: start: 1989
  2. TAVIST ALLERGY (FORMERLY TAVIST-1) TABS [Suspect]
     Indication: FEELING HOT
  3. TAVIST ALLERGY (FORMERLY TAVIST-1) TABS [Suspect]
     Indication: MASTOCYTOSIS

REACTIONS (8)
  - Type 2 diabetes mellitus [Not Recovered/Not Resolved]
  - Mastocytosis [Recovered/Resolved]
  - Feeling hot [Recovered/Resolved]
  - Disease recurrence [Recovered/Resolved]
  - Therapeutic response unexpected [Unknown]
  - Off label use [Unknown]
  - Wrong technique in drug usage process [Unknown]
  - Underdose [Unknown]
